FAERS Safety Report 14008106 (Version 2)
Quarter: 2017Q4

REPORT INFORMATION
  Report Type: Spontaneous
  Country: US (occurrence: US)
  Receive Date: 20170925
  Receipt Date: 20171031
  Transmission Date: 20180321
  Serious: No
  Sender: FDA-Public Use
  Company Number: US-VERTEX PHARMACEUTICALS-2017-005195

PATIENT
  Age: 16 Year
  Sex: Male

DRUGS (14)
  1. VITAMIN E [Concomitant]
     Active Substance: .ALPHA.-TOCOPHEROL
  2. VITAMIN K [Concomitant]
     Active Substance: PHYTONADIONE
  3. VITAMIN D [Concomitant]
     Active Substance: CHOLECALCIFEROL
  4. MEPHYTON [Concomitant]
     Active Substance: PHYTONADIONE
  5. PULMOZYME [Suspect]
     Active Substance: DORNASE ALFA
     Indication: CYSTIC FIBROSIS
     Dosage: 2.5 MG, DAILY
     Route: 048
     Dates: start: 20141105
  6. ORKAMBI [Suspect]
     Active Substance: IVACAFTOR\LUMACAFTOR
     Indication: CYSTIC FIBROSIS
     Dosage: 400/ 250 MG, BID
     Route: 048
     Dates: start: 20160217
  7. CREON [Concomitant]
     Active Substance: PANCRELIPASE AMYLASE\PANCRELIPASE LIPASE\PANCRELIPASE PROTEASE
  8. HYPERSAL [Concomitant]
  9. ALBUTEROL. [Concomitant]
     Active Substance: ALBUTEROL
  10. URSODIOL. [Concomitant]
     Active Substance: URSODIOL
     Dosage: 300 MG, UNK
  11. VITAMIN A [Concomitant]
     Active Substance: VITAMIN A
  12. VITAMIN B COMPLEX [Concomitant]
     Active Substance: CYANOCOBALAMIN\DEXPANTHENOL\NIACINAMIDE\PYRIDOXINE HYDROCHLORIDE\RIBOFLAVIN 5^-PHOSPHATE SODIUM\THIAMINE HYDROCHLORIDE\VITAMIN B COMPLEX
  13. PROBIOTIC [Concomitant]
     Active Substance: PROBIOTICS NOS
  14. OMEPRAZOLE. [Concomitant]
     Active Substance: OMEPRAZOLE

REACTIONS (1)
  - Sinusitis [Not Recovered/Not Resolved]

NARRATIVE: CASE EVENT DATE: 201709
